FAERS Safety Report 5402777-5 (Version None)
Quarter: 2007Q3

REPORT INFORMATION
  Report Type: 
  Country: None (occurrence: None)
  Receive Date: 20070730
  Receipt Date: 20070717
  Transmission Date: 20080115
  Serious: Yes (Other)
  Sender: FDA-Public Use
  Company Number: 6035757

PATIENT
  Age: 84 Year
  Sex: Female

DRUGS (5)
  1. BISOPROLOL FUMARATE [Suspect]
     Indication: CARDIAC FAILURE
     Dosage: 1 DOSAGE FORMS, 1 D);
     Dates: start: 20070424, end: 20070509
  2. MINISINTROM (TABLET) (ACENOCOUMAROL) [Suspect]
     Indication: ATRIAL FIBRILLATION
     Dosage: 2 MG (1 MG, 2 D);
     Dates: start: 20060501, end: 20070514
  3. ALDACTONE [Suspect]
     Indication: CARDIAC FAILURE
     Dosage: 50 MG (50 MG, 1 D); ORAL
     Route: 048
     Dates: start: 20070423, end: 20070509
  4. FUROSEMIDE [Concomitant]
  5. COVERSYL (TABLET) (PERINDOPRIL) [Concomitant]

REACTIONS (2)
  - INTERNATIONAL NORMALISED RATIO INCREASED [None]
  - LEUKOCYTOCLASTIC VASCULITIS [None]
